FAERS Safety Report 6621084-6 (Version None)
Quarter: 2010Q1

REPORT INFORMATION
  Report Type: 
  Country: None (occurrence: None)
  Receive Date: 20100309
  Receipt Date: 20100303
  Transmission Date: 20100710
  Serious: Yes (Other)
  Sender: FDA-Public Use
  Company Number: B0627940A

PATIENT
  Sex: Female
  Weight: 91 kg

DRUGS (8)
  1. ZANAMIVIR [Suspect]
     Indication: H1N1 INFLUENZA
     Route: 042
     Dates: start: 20100107, end: 20100116
  2. OSELTAMIVIR PHOSPHATE [Concomitant]
     Indication: H1N1 INFLUENZA
     Dosage: 150MG PER DAY
     Route: 048
     Dates: start: 20100105, end: 20100106
  3. ROCEPHIN [Concomitant]
     Dosage: 1G PER DAY
     Route: 065
     Dates: start: 20090101
  4. MIDAZOLAM HCL [Concomitant]
     Dosage: 20MGH PER DAY
     Route: 065
  5. CORTICOSTEROIDS [Concomitant]
     Route: 065
  6. FENTANYL [Concomitant]
     Dosage: .2MGH PER DAY
     Route: 065
  7. NORADRENALINE [Concomitant]
     Route: 065
     Dates: start: 20100107, end: 20100113
  8. MECHANICAL VENTILATION [Concomitant]
     Indication: ACUTE RESPIRATORY DISTRESS SYNDROME

REACTIONS (1)
  - BRADYCARDIA [None]
